FAERS Safety Report 9505399 (Version 1)
Quarter: 2013Q1

REPORT INFORMATION
  Report Type: Spontaneous
  Country: US (occurrence: None)
  Receive Date: 20130225
  Receipt Date: 20130225
  Transmission Date: 20140127
  Serious: No
  Sender: FDA-Public Use
  Company Number: 367630

PATIENT
  Sex: Male

DRUGS (2)
  1. VICTOZA (LIRAGLUTIDE) SOLUTION FOR INJECTION, 6MG/ML [Suspect]
     Indication: TYPE 2 DIABETES MELLITUS
     Dosage: 1.8 MG DAILY, SUBCUTANEOUS
     Route: 058
     Dates: start: 20121120, end: 20121218
  2. METFORMIN (METFORMIN) [Concomitant]

REACTIONS (7)
  - Malaise [None]
  - Decreased appetite [None]
  - Nausea [None]
  - Vomiting [None]
  - Injection site urticaria [None]
  - Dehydration [None]
  - Blood glucose increased [None]
